FAERS Safety Report 16959036 (Version 1)
Quarter: 2019Q4

REPORT INFORMATION
  Report Type: Spontaneous
  Country: US (occurrence: US)
  Receive Date: 20191024
  Receipt Date: 20191024
  Transmission Date: 20200122
  Serious: No
  Sender: FDA-Public Use
  Company Number: US-ROCHE-2372348

PATIENT
  Sex: Female

DRUGS (1)
  1. COTELLIC [Suspect]
     Active Substance: COBIMETINIB
     Indication: METABOLIC DISORDER
     Route: 048
     Dates: start: 20190705

REACTIONS (4)
  - Diarrhoea [Unknown]
  - Acne [Unknown]
  - Rash [Unknown]
  - Dandruff [Unknown]
